FAERS Safety Report 5191348-4 (Version None)
Quarter: 2006Q4

REPORT INFORMATION
  Report Type: 
  Country: None (occurrence: None)
  Receive Date: 20061226
  Receipt Date: 20060405
  Transmission Date: 20070319
  Serious: Yes (Other)
  Sender: FDA-Public Use
  Company Number: US-ROCHE-443569

PATIENT
  Age: 18 Year
  Sex: Male
  Weight: 73.5 kg

DRUGS (3)
  1. ACCUTANE [Suspect]
     Route: 048
     Dates: start: 20000509, end: 20000611
  2. ACCUTANE [Suspect]
     Route: 048
     Dates: start: 20000612, end: 20001121
  3. PAXIL [Concomitant]
     Indication: DEPRESSION
     Route: 048

REACTIONS (28)
  - ACCIDENT AT WORK [None]
  - ANAL SKIN TAGS [None]
  - ANORECTAL DISORDER [None]
  - ARTHRALGIA [None]
  - BACK INJURY [None]
  - BILIARY DILATATION [None]
  - BILIARY DYSKINESIA [None]
  - CHEILITIS [None]
  - COLONIC POLYP [None]
  - CROHN'S DISEASE [None]
  - DIZZINESS [None]
  - FATIGUE [None]
  - GASTRITIS EROSIVE [None]
  - GASTROOESOPHAGITIS [None]
  - HAEMORRHOIDS [None]
  - HAND FRACTURE [None]
  - HEADACHE [None]
  - ILL-DEFINED DISORDER [None]
  - INFLAMMATORY BOWEL DISEASE [None]
  - INJURY [None]
  - LIP DRY [None]
  - NEPHROLITHIASIS [None]
  - OBSTRUCTION [None]
  - OESOPHAGITIS [None]
  - PARTNER STRESS [None]
  - PIRIFORMIS SYNDROME [None]
  - SUICIDAL IDEATION [None]
  - TACHYCARDIA [None]
